FAERS Safety Report 17044149 (Version 1)
Quarter: 2019Q4

REPORT INFORMATION
  Report Type: Spontaneous
  Country: US (occurrence: US)
  Receive Date: 20191115
  Receipt Date: 20191115
  Transmission Date: 20200122
  Serious: Yes (Life-Threatening, Other)
  Sender: FDA-Public Use
  Company Number: None

PATIENT
  Age: 48 Year
  Sex: Male
  Weight: 76.5 kg

DRUGS (1)
  1. BUPRENORPHINE AND NALOXONE [Suspect]
     Active Substance: BUPRENORPHINE HYDROCHLORIDE\NALOXONE HYDROCHLORIDE
     Indication: DRUG DEPENDENCE
     Dosage: ?          QUANTITY:2 TABLET(S);?
     Route: 048

REACTIONS (5)
  - Weight decreased [None]
  - Pyrexia [None]
  - Near death experience [None]
  - Drug withdrawal syndrome [None]
  - Hallucination, visual [None]

NARRATIVE: CASE EVENT DATE: 20191108
